FAERS Safety Report 9262683 (Version 1)
Quarter: 2013Q2

REPORT INFORMATION
  Report Type: Spontaneous
  Country: US (occurrence: US)
  Receive Date: 20130430
  Receipt Date: 20130430
  Transmission Date: 20140414
  Serious: Yes (Other)
  Sender: FDA-Public Use
  Company Number: US-PFIZER INC-2013130995

PATIENT
  Sex: 0

DRUGS (4)
  1. IRINOTECAN HCL [Suspect]
     Dosage: UNK,
  2. FLUOROURACIL [Suspect]
     Dosage: UNK,
  3. FOLINIC ACID [Suspect]
  4. ZALTRAP [Suspect]
     Dosage: UNK

REACTIONS (1)
  - Neutropenia [Unknown]
